FAERS Safety Report 7251295-0 (Version None)
Quarter: 2011Q1

REPORT INFORMATION
  Report Type: 
  Country: None (occurrence: None)
  Receive Date: 20110128
  Receipt Date: 20110124
  Transmission Date: 20110831
  Serious: Yes (Death, Other)
  Sender: FDA-Public Use
  Company Number: FR-GENZYME-CAMP-1001257

PATIENT
  Sex: Male

DRUGS (1)
  1. CAMPATH [Suspect]
     Indication: CHRONIC LYMPHOCYTIC LEUKAEMIA
     Dosage: 30 MG/ML, QD
     Route: 058
     Dates: start: 20101122

REACTIONS (3)
  - INJECTION SITE OEDEMA [None]
  - PYREXIA [None]
  - SYSTEMIC CANDIDA [None]
